FAERS Safety Report 4735251-X (Version None)
Quarter: 2005Q3

REPORT INFORMATION
  Report Type: 
  Country: None (occurrence: None)
  Receive Date: 20050802
  Receipt Date: 20050719
  Transmission Date: 20060218
  Serious: Yes (Other)
  Sender: FDA-Public Use
  Company Number: 200512308GDS

PATIENT
  Age: 19 Year
  Sex: Female
  Weight: 91.4 kg

DRUGS (1)
  1. NIFEDIPINE [Suspect]
     Indication: HYPERTENSION

REACTIONS (9)
  - BLOOD PRESSURE INCREASED [None]
  - CEREBRAL ATROPHY [None]
  - ELECTROCARDIOGRAM T WAVE ABNORMAL [None]
  - EXTRASYSTOLES [None]
  - HEART RATE INCREASED [None]
  - PALPITATIONS [None]
  - SINUS BRADYCARDIA [None]
  - VENTRICULAR ARRHYTHMIA [None]
  - VENTRICULAR EXTRASYSTOLES [None]
